FAERS Safety Report 4664222-7 (Version None)
Quarter: 2005Q2

REPORT INFORMATION
  Report Type: 
  Country: None (occurrence: None)
  Receive Date: 20050516
  Receipt Date: 20050503
  Transmission Date: 20051028
  Serious: Yes (Other)
  Sender: FDA-Public Use
  Company Number: 2005072081

PATIENT
  Sex: Male

DRUGS (6)
  1. BEXTRA [Suspect]
     Indication: ILL-DEFINED DISORDER
     Dosage: 20 MG, ORAL
     Route: 048
     Dates: start: 20030501
  2. HYDROMORPHONE HCL [Concomitant]
  3. BUPRENORPHINE (BURENORPHINE) [Concomitant]
  4. ZOLOFT [Concomitant]
  5. TRIMIPRAMINE MALEATE [Concomitant]
  6. DICLOFENAC SODIUM [Concomitant]

REACTIONS (2)
  - RASH PUSTULAR [None]
  - SCAR [None]
